FAERS Safety Report 17240522 (Version 1)
Quarter: 2020Q1

REPORT INFORMATION
  Report Type: Report from Study
  Country: CA (occurrence: CA)
  Receive Date: 20200107
  Receipt Date: 20200107
  Transmission Date: 20200409
  Serious: Yes (Other)
  Sender: FDA-Public Use
  Company Number: CA-ORION CORPORATION ORION PHARMA-TREX2020-0053

PATIENT
  Age: 68 Year
  Sex: Female

DRUGS (11)
  1. CICLOSPORIN [Suspect]
     Active Substance: CYCLOSPORINE
     Indication: PSORIASIS
     Route: 065
  2. COSENTYX [Suspect]
     Active Substance: SECUKINUMAB
     Route: 058
  3. BETAMETHASONE. [Concomitant]
     Active Substance: BETAMETHASONE
     Route: 065
  4. BUTYL HYDROXYBENZOATE-CETYL ALCOHOL;PROPYLENE GLYCOL-SODIUM LAURYL SUL [Concomitant]
     Route: 065
  5. METHOTREXATE (TRADE NAME UNKNOWN) [Suspect]
     Active Substance: METHOTREXATE
     Indication: PRODUCT USED FOR UNKNOWN INDICATION
     Route: 065
  6. COSENTYX [Suspect]
     Active Substance: SECUKINUMAB
     Indication: PSORIASIS
     Route: 058
  7. CLOBETASOL [Concomitant]
     Active Substance: CLOBETASOL
     Route: 065
  8. COSENTYX [Suspect]
     Active Substance: SECUKINUMAB
     Route: 058
  9. HUMIRA [Concomitant]
     Active Substance: ADALIMUMAB
     Route: 065
  10. SALICYLIC ACID. [Concomitant]
     Active Substance: SALICYLIC ACID
     Route: 065
  11. STELARA [Concomitant]
     Active Substance: USTEKINUMAB
     Route: 065

REACTIONS (7)
  - Nasopharyngitis [Unknown]
  - Malaise [Unknown]
  - Chronic obstructive pulmonary disease [Unknown]
  - Lower respiratory tract infection [Unknown]
  - Scab [Unknown]
  - Viral infection [Unknown]
  - Palmoplantar keratoderma [Unknown]
